FAERS Safety Report 12238660 (Version 1)
Quarter: 2016Q2

REPORT INFORMATION
  Report Type: Spontaneous
  Country: US (occurrence: None)
  Receive Date: 20160404
  Receipt Date: 20160404
  Transmission Date: 20160815
  Serious: Yes (Hospitalization)
  Sender: FDA-Public Use
  Company Number: None

PATIENT
  Age: 95 Year
  Sex: Male
  Weight: 86 kg

DRUGS (6)
  1. LASIX [Concomitant]
     Active Substance: FUROSEMIDE
  2. WARFARIN, 5 MG [Suspect]
     Active Substance: WARFARIN
     Indication: ATRIAL FIBRILLATION
     Route: 048
  3. PROSCAR [Concomitant]
     Active Substance: FINASTERIDE
  4. LEVAQUIN [Concomitant]
     Active Substance: LEVOFLOXACIN
  5. LANOXIN [Concomitant]
     Active Substance: DIGOXIN
  6. NORVASC [Concomitant]
     Active Substance: AMLODIPINE BESYLATE

REACTIONS (5)
  - Blood urine present [None]
  - Epistaxis [None]
  - International normalised ratio increased [None]
  - Treatment noncompliance [None]
  - Haemorrhage [None]

NARRATIVE: CASE EVENT DATE: 20160204
